FAERS Safety Report 19266528 (Version 3)
Quarter: 2022Q4

REPORT INFORMATION
  Report Type: Spontaneous
  Country: CN (occurrence: None)
  Receive Date: 20210518
  Receipt Date: 20221116
  Transmission Date: 20230112
  Serious: Yes (Other)
  Sender: FDA-Public Use
  Company Number: CN-ROCHE-2831779

PATIENT
  Age: 35 Year
  Sex: Female

DRUGS (14)
  1. HERCEPTIN [Suspect]
     Active Substance: TRASTUZUMAB
     Indication: Breast cancer
     Dosage: FOR 3 CYCLES OF TCBHP REGIMEN, FIRST DOSE WAS 520MG, FOLLOWED BY 390MG
     Route: 065
     Dates: start: 20200710
  2. HERCEPTIN [Suspect]
     Active Substance: TRASTUZUMAB
     Dosage: FOR 3 CYCLES OF TCBHP REGIMEN
     Route: 065
  3. PERJETA [Suspect]
     Active Substance: PERTUZUMAB
     Indication: Breast cancer
     Dosage: FOR 3 CYCLES OF TCBHP REGIMEN,FIRST DOSE WAS 840MG, FOLLOWED BY 420MG
     Route: 065
     Dates: start: 20200710
  4. PERJETA [Suspect]
     Active Substance: PERTUZUMAB
     Dosage: FOR 3 CYCLES OF TCBHP REGIMEN.
     Route: 065
  5. KADCYLA [Suspect]
     Active Substance: ADO-TRASTUZUMAB EMTANSINE
     Indication: Breast cancer
     Route: 065
     Dates: start: 20201224
  6. KADCYLA [Suspect]
     Active Substance: ADO-TRASTUZUMAB EMTANSINE
     Dosage: TREATMENT DATES: ON 15/JAN/2021 AND 05/FEB/2021
     Route: 065
     Dates: start: 20210115
  7. KADCYLA [Suspect]
     Active Substance: ADO-TRASTUZUMAB EMTANSINE
     Dosage: TREATMENT DATES: ON 15/JAN/2021 AND 05/FEB/2021
     Route: 065
     Dates: start: 20210205
  8. KADCYLA [Suspect]
     Active Substance: ADO-TRASTUZUMAB EMTANSINE
     Dosage: FROM CYCLE 4 TO CYCLE 8
     Route: 065
  9. DOCETAXEL [Concomitant]
     Active Substance: DOCETAXEL
     Indication: Breast cancer
     Dosage: FOR 3 CYCLES OF TCBHP REGIMEN, AT 130MG ON DAY 1
     Dates: start: 20200710
  10. CARBOPLATIN [Concomitant]
     Active Substance: CARBOPLATIN
     Indication: Breast cancer
     Dosage: FOR 3 CYCLES OF TCBHP REGIMEN, AT 700MG AT DAY 1
     Dates: start: 20200710
  11. PACLITAXEL [Concomitant]
     Active Substance: PACLITAXEL
     Indication: Breast cancer
     Dosage: FOR 3 CYCLES OF TCBHP REGIMEN, AT 130MG ON DAY 1
  12. GOSERELIN ACETATE [Concomitant]
     Active Substance: GOSERELIN ACETATE
     Indication: Breast cancer
     Dates: start: 20210121
  13. PYROTINIB [Concomitant]
     Active Substance: PYROTINIB
     Indication: Breast cancer
  14. FAM-TRASTUZUMAB DERUXTECAN-NXKI [Concomitant]
     Active Substance: FAM-TRASTUZUMAB DERUXTECAN-NXKI
     Indication: Breast cancer
     Dosage: 5.4 MG/KG

REACTIONS (2)
  - Myelosuppression [Recovered/Resolved]
  - Thrombocytopenia [Recovered/Resolved]

NARRATIVE: CASE EVENT DATE: 20201230
